FAERS Safety Report 23353507 (Version 3)
Quarter: 2025Q1

REPORT INFORMATION
  Report Type: Spontaneous
  Country: JP (occurrence: JP)
  Receive Date: 20231231
  Receipt Date: 20250312
  Transmission Date: 20250409
  Serious: Yes (Other)
  Sender: NOVARTIS
  Company Number: JP-002147023-PHJP2016JP032474

PATIENT
  Age: 80 Year
  Sex: Male
  Weight: 57.5 kg

DRUGS (3)
  1. ZOLEDRONIC ACID [Suspect]
     Active Substance: ZOLEDRONIC ACID
     Indication: Metastases to bone
     Dosage: 4 MG, QMO
     Route: 042
  2. BICALUTAMIDE [Concomitant]
     Active Substance: BICALUTAMIDE
     Indication: Metastases to bone
     Route: 065
  3. GOSERELIN [Concomitant]
     Active Substance: GOSERELIN
     Indication: Metastases to bone
     Route: 065

REACTIONS (4)
  - Renal impairment [Unknown]
  - Renal tubular acidosis [Unknown]
  - Hypocalcaemia [Unknown]
  - Dosage not adjusted [Unknown]
